FAERS Safety Report 9342496 (Version 2)
Quarter: 2013Q3

REPORT INFORMATION
  Report Type: Spontaneous
  Country: US (occurrence: None)
  Receive Date: 20130528
  Receipt Date: 20130702
  Transmission Date: 20140515
  Serious: Yes (Hospitalization)
  Sender: FDA-Public Use
  Company Number: 2012-002863

PATIENT
  Age: 79 Year
  Sex: Female

DRUGS (38)
  1. ACTONEL [Suspect]
     Indication: OSTEOPENIA
     Route: 048
     Dates: start: 2003, end: 200903
  2. ACTONEL [Suspect]
     Indication: OSTEOPOROSIS
     Route: 048
     Dates: start: 2003, end: 200903
  3. ACTONEL [Suspect]
     Route: 048
     Dates: start: 2003, end: 200903
  4. ACTONEL [Suspect]
     Route: 048
     Dates: start: 2003, end: 200903
  5. ACTONEL (RISEDRONATE SODIUM) TABLET, 150MG [Suspect]
     Indication: OSTEOPENIA
     Route: 048
     Dates: start: 200903, end: 201006
  6. ACTONEL (RISEDRONATE SODIUM) TABLET, 150MG [Suspect]
     Indication: PROPHYLAXIS
     Route: 048
     Dates: start: 200903, end: 201006
  7. ACTONEL (RISEDRONATE SODIUM) TABLET, 150MG [Suspect]
     Route: 048
     Dates: start: 200903, end: 201006
  8. ACTONEL (RISEDRONATE SODIUM) TABLET, 150MG [Suspect]
     Route: 048
     Dates: start: 200903, end: 201006
  9. FOSAMAX [Suspect]
     Indication: OSTEOPOROSIS
     Route: 048
     Dates: start: 200103, end: 2003
  10. FOSAMAX [Suspect]
     Indication: PROPHYLAXIS
     Route: 048
     Dates: start: 200103, end: 2003
  11. FOSAMAX [Suspect]
     Route: 048
     Dates: start: 200103, end: 2003
  12. FOSAMAX [Suspect]
     Route: 048
     Dates: start: 200103, end: 2003
  13. RECLAST [Suspect]
     Dosage: INJECTIONS, OTHER
     Dates: start: 201103
  14. ZOCOR [Concomitant]
  15. LISINOPRIL [Concomitant]
  16. ATACAND [Concomitant]
  17. ASPIRIN [Concomitant]
  18. MOTRIN [Concomitant]
  19. ALEVE [Concomitant]
  20. MOBIC [Concomitant]
  21. BEXTRA [Concomitant]
  22. NEURONTIN [Concomitant]
  23. LEXAPRO [Concomitant]
  24. ALLEGRA [Concomitant]
  25. ENDAL HD [Concomitant]
  26. MACRODANTIN [Concomitant]
  27. Z-PAK [Concomitant]
  28. GENTAMICIN [Concomitant]
  29. TRAVATAN [Concomitant]
  30. TEQUIN [Concomitant]
  31. GLUCOSAMINE CHONDROITIN [Concomitant]
  32. IRON [Concomitant]
  33. CENTRUM [Concomitant]
  34. VITAMIN C [Concomitant]
  35. CALTRATE +D [Concomitant]
  36. LEVAQUIN (LEVOFLOXACIN) [Concomitant]
  37. CIPRO [Concomitant]
  38. AUGMENTIN [Concomitant]

REACTIONS (11)
  - Femur fracture [None]
  - Fracture displacement [None]
  - Fall [None]
  - Pain in extremity [None]
  - Pathological fracture [None]
  - Femoral neck fracture [None]
  - Impaired healing [None]
  - Bone disorder [None]
  - Stress fracture [None]
  - Low turnover osteopathy [None]
  - Pain [None]
